FAERS Safety Report 10537539 (Version 1)
Quarter: 2014Q4

REPORT INFORMATION
  Report Type: Spontaneous
  Country: US (occurrence: None)
  Receive Date: 20141021
  Receipt Date: 20141021
  Transmission Date: 20150529
  Serious: Yes (Hospitalization)
  Sender: FDA-Public Use
  Company Number: USW201410-000235

PATIENT
  Age: 55 Year
  Sex: Male

DRUGS (1)
  1. APOKYN [Suspect]
     Active Substance: APOMORPHINE HYDROCHLORIDE
     Indication: PARKINSON^S DISEASE
     Route: 058
     Dates: start: 20140924

REACTIONS (3)
  - Feeling abnormal [None]
  - Speech disorder [None]
  - Tremor [None]

NARRATIVE: CASE EVENT DATE: 20141004
